FAERS Safety Report 8978891 (Version 1)
Quarter: 2012Q4

REPORT INFORMATION
  Report Type: 
  Country: US (occurrence: US)
  Receive Date: 20121221
  Receipt Date: 20121221
  Transmission Date: 20130627
  Serious: Yes (Hospitalization)
  Sender: FDA-Public Use
  Company Number: US-TEVA-376913USA

PATIENT
  Sex: Female

DRUGS (1)
  1. KELNOR 1/35 [Suspect]
     Indication: CONTRACEPTION

REACTIONS (4)
  - Delusional disorder, unspecified type [Unknown]
  - Paranoia [Unknown]
  - Disorientation [Unknown]
  - Fear [Unknown]
